FAERS Safety Report 12504142 (Version 2)
Quarter: 2016Q3

REPORT INFORMATION
  Report Type: Spontaneous
  Country: US (occurrence: US)
  Receive Date: 20160628
  Receipt Date: 20160722
  Transmission Date: 20161109
  Serious: Yes (Hospitalization)
  Sender: FDA-Public Use
  Company Number: US-PFIZER INC-2016313530

PATIENT
  Age: 62 Year
  Sex: Female
  Weight: 68 kg

DRUGS (11)
  1. MORPHINE ER [Concomitant]
     Active Substance: MORPHINE
     Indication: INTERVERTEBRAL DISC DEGENERATION
  2. TIZANIDINE. [Concomitant]
     Active Substance: TIZANIDINE
     Indication: MUSCLE RELAXANT THERAPY
     Dosage: UNK UNK, 3X/DAY
     Dates: start: 201601
  3. VFEND [Suspect]
     Active Substance: VORICONAZOLE
     Indication: ASPERGILLUS INFECTION
     Dosage: 400 MG, 2X/DAY, EVERY 12 HOURS
     Route: 048
     Dates: start: 201511
  4. MORPHINE ER [Concomitant]
     Active Substance: MORPHINE
     Indication: SCOLIOSIS
  5. MORPHINE ER [Concomitant]
     Active Substance: MORPHINE
     Indication: BACK PAIN
     Dosage: 60 MG, 2X/DAY
  6. OXYCODONE [Concomitant]
     Active Substance: OXYCODONE
     Dosage: UNK
     Dates: start: 201511
  7. FLUOXETINE HYDROCHLORIDE. [Concomitant]
     Active Substance: FLUOXETINE HYDROCHLORIDE
     Indication: DEPRESSION
     Dosage: UNK UNK, 1X/DAY
     Dates: start: 201307
  8. OXYCODONE [Concomitant]
     Active Substance: OXYCODONE
     Indication: PAIN
     Dosage: TWO TO THREE 5MG PILLS EVERY FOUR HOURS AS NEEDED
     Dates: start: 201508
  9. GABAPENTIN. [Concomitant]
     Active Substance: GABAPENTIN
     Indication: NEUROPATHY PERIPHERAL
     Dosage: UNK UNK, 2X/DAY
     Dates: start: 201307
  10. VFEND [Suspect]
     Active Substance: VORICONAZOLE
     Dosage: 200 MG, UNK
  11. MORPHINE ER [Concomitant]
     Active Substance: MORPHINE
     Indication: MILLER FISHER SYNDROME

REACTIONS (2)
  - Hip fracture [Recovering/Resolving]
  - Fall [Recovered/Resolved]

NARRATIVE: CASE EVENT DATE: 20160611
